FAERS Safety Report 22390933 (Version 1)
Quarter: 2023Q2

REPORT INFORMATION
  Report Type: Spontaneous
  Country: NL (occurrence: NL)
  Receive Date: 20230601
  Receipt Date: 20230601
  Transmission Date: 20230722
  Serious: Yes (Other)
  Sender: FDA-Public Use
  Company Number: None

PATIENT
  Sex: Female
  Weight: 75 kg

DRUGS (1)
  1. FLUTICASONE PROPIONATE\SALMETEROL XINAFOATE [Suspect]
     Active Substance: FLUTICASONE PROPIONATE\SALMETEROL XINAFOATE
     Indication: Asthma
     Dosage: 2 DOSAGE FORMS DAILY; 2 X DD, FORM STRENGTH : 50/250UG/DO, BRAND NAME NOT SPECIFIED
     Route: 065
     Dates: start: 20220204

REACTIONS (1)
  - Angina bullosa haemorrhagica [Recovering/Resolving]
